FAERS Safety Report 12206957 (Version 1)
Quarter: 2016Q1

REPORT INFORMATION
  Report Type: Spontaneous
  Country: US (occurrence: US)
  Receive Date: 20160324
  Receipt Date: 20160324
  Transmission Date: 20160526
  Serious: No
  Sender: FDA-Public Use
  Company Number: US-BRISTOL-MYERS SQUIBB COMPANY-BMS-2016-021121

PATIENT
  Sex: Female

DRUGS (2)
  1. ELIQUIS [Suspect]
     Active Substance: APIXABAN
     Indication: CEREBROVASCULAR ACCIDENT PROPHYLAXIS
     Dosage: 2.5 MG, UNK
     Route: 065
  2. ELIQUIS [Suspect]
     Active Substance: APIXABAN
     Dosage: 2.5 UNK, UNK
     Route: 065

REACTIONS (8)
  - Secretion discharge [Unknown]
  - Peripheral swelling [Unknown]
  - Dyspnoea [Unknown]
  - Dizziness [Unknown]
  - Pain in extremity [Unknown]
  - Rhinorrhoea [Unknown]
  - Wheezing [Unknown]
  - Syncope [Unknown]
